FAERS Safety Report 4481502-9 (Version None)
Quarter: 2004Q3

REPORT INFORMATION
  Report Type: 
  Country: None (occurrence: None)
  Receive Date: 20040923
  Receipt Date: 20040610
  Transmission Date: 20050211
  Serious: No
  Sender: FDA-Public Use
  Company Number: USA040669781

PATIENT
  Age: 85 Year
  Sex: Female
  Weight: 42 kg

DRUGS (2)
  1. FORTEO [Suspect]
     Indication: OSTEOPOROSIS
     Dosage: 20 UG/1 DAY
     Dates: start: 20030601
  2. CALCIUM PLUS D [Concomitant]

REACTIONS (3)
  - FEELING ABNORMAL [None]
  - MUSCLE SPASMS [None]
  - PAIN [None]
